FAERS Safety Report 10498668 (Version 2)
Quarter: 2014Q4

REPORT INFORMATION
  Report Type: Spontaneous
  Country: CA (occurrence: CA)
  Receive Date: 20141006
  Receipt Date: 20141006
  Transmission Date: 20150528
  Serious: Yes (Hospitalization, Disabling, Other)
  Sender: FDA-Public Use
  Company Number: CA-ACTELION-A-NJ2014-93581

PATIENT
  Age: 84 Year
  Sex: Female

DRUGS (9)
  1. SOFLAX [Concomitant]
     Active Substance: DOCUSATE
  2. AMANTADINE [Concomitant]
     Active Substance: AMANTADINE
     Dosage: 5 MG, UNK
  3. FUROSEMIDE. [Concomitant]
     Active Substance: FUROSEMIDE
     Dosage: 40 MG, UNK
  4. COUMADIN [Concomitant]
     Active Substance: WARFARIN SODIUM
  5. VITAMIN B12 [Concomitant]
     Active Substance: CYANOCOBALAMIN
  6. ATENOLOL. [Concomitant]
     Active Substance: ATENOLOL
     Dosage: 25 MG, UNK
  7. TRACLEER [Suspect]
     Active Substance: BOSENTAN\BOSENTAN MONOHYDRATE
     Indication: PULMONARY ARTERIAL HYPERTENSION
     Dosage: 125 MG, UNK
     Route: 048
     Dates: start: 201310, end: 201401
  8. TRACLEER [Suspect]
     Active Substance: BOSENTAN\BOSENTAN MONOHYDRATE
     Dosage: 62.5 MG, UNK
     Route: 048
     Dates: start: 201309, end: 201310
  9. RAMIPRIL. [Concomitant]
     Active Substance: RAMIPRIL
     Dosage: 5 UNK, UNK

REACTIONS (10)
  - Decreased appetite [Unknown]
  - Liver disorder [Unknown]
  - No therapeutic response [Unknown]
  - Hepatotoxicity [Unknown]
  - Productive cough [Unknown]
  - Weight decreased [Unknown]
  - Dizziness postural [Unknown]
  - Gamma-glutamyltransferase increased [Unknown]
  - Alanine aminotransferase increased [Unknown]
  - Orthopnoea [Recovering/Resolving]

NARRATIVE: CASE EVENT DATE: 201401
